FAERS Safety Report 7575393-7 (Version None)
Quarter: 2011Q2

REPORT INFORMATION
  Report Type: 
  Country: None (occurrence: None)
  Receive Date: 20110627
  Receipt Date: 20110615
  Transmission Date: 20111010
  Serious: Yes (Hospitalization)
  Sender: FDA-Public Use
  Company Number: PHHY2011US25813

PATIENT
  Sex: Male
  Weight: 180 kg

DRUGS (1)
  1. EXJADE [Suspect]
     Indication: ACUTE MYELOID LEUKAEMIA
     Dosage: 2000 MG, QD
     Route: 048
     Dates: start: 20100401

REACTIONS (5)
  - DEVICE RELATED INFECTION [None]
  - DRUG INTOLERANCE [None]
  - VOMITING [None]
  - PYREXIA [None]
  - PAIN [None]
